FAERS Safety Report 9630951 (Version 1)
Quarter: 2013Q4

REPORT INFORMATION
  Report Type: Report from Study
  Country: US (occurrence: US)
  Receive Date: 20131018
  Receipt Date: 20131018
  Transmission Date: 20140711
  Serious: Yes (Other)
  Sender: FDA-Public Use
  Company Number: US-JNJFOC-20131005065

PATIENT
  Sex: Female

DRUGS (5)
  1. FENTANYL [Suspect]
     Indication: PRODUCT USED FOR UNKNOWN INDICATION
     Route: 050
  2. FENTANYL [Suspect]
     Indication: COMPLETED SUICIDE
     Route: 050
  3. FENTANYL [Suspect]
     Indication: WITHDRAWAL SYNDROME
     Route: 050
  4. FENTANYL [Suspect]
     Indication: DRUG ABUSE
     Route: 050
  5. FENTANYL [Suspect]
     Indication: INTENTIONAL DRUG MISUSE
     Route: 050

REACTIONS (3)
  - Exposure during pregnancy [Unknown]
  - Toxicity to various agents [Unknown]
  - Overdose [Unknown]
